FAERS Safety Report 8687152 (Version 2)
Quarter: 2013Q4

REPORT INFORMATION
  Report Type: Spontaneous
  Country: US (occurrence: US)
  Receive Date: 20120727
  Receipt Date: 20131122
  Transmission Date: 20140711
  Serious: Yes (Hospitalization, Other)
  Sender: FDA-Public Use
  Company Number: US-BAYER-2012-072839

PATIENT
  Age: 24 Year
  Sex: Female
  Weight: 86.17 kg

DRUGS (5)
  1. YAZ [Suspect]
  2. SERTRALINE [Concomitant]
     Dosage: 50 MG, DAILY
     Dates: start: 20100305
  3. NEURONTIN [Concomitant]
     Dosage: 100 MG, DAILY
     Dates: start: 20100305
  4. NAPROXEN [Concomitant]
     Dosage: 375 MG, UNK
     Dates: start: 20100430
  5. ZOLOFT [Concomitant]

REACTIONS (2)
  - Pulmonary embolism [None]
  - Embolism [None]
